FAERS Safety Report 7435835-4 (Version None)
Quarter: 2011Q2

REPORT INFORMATION
  Report Type: 
  Country: None (occurrence: None)
  Receive Date: 20110425
  Receipt Date: 20110413
  Transmission Date: 20111010
  Serious: Yes (Other)
  Sender: FDA-Public Use
  Company Number: US-ELI_LILLY_AND_COMPANY-US201104004261

PATIENT
  Age: 55 Year
  Sex: Female

DRUGS (2)
  1. CYMBALTA [Suspect]
     Indication: DEPRESSION
     Dosage: 30 MG, UNK
     Dates: start: 20110407, end: 20110412
  2. PROZAC [Suspect]
     Dosage: UNK

REACTIONS (12)
  - SLEEP DISORDER [None]
  - THROAT TIGHTNESS [None]
  - DYSPNOEA [None]
  - FEELING ABNORMAL [None]
  - CONSTIPATION [None]
  - EAR DISCOMFORT [None]
  - DIZZINESS [None]
  - ANXIETY [None]
  - TINNITUS [None]
  - TREMOR [None]
  - PALPITATIONS [None]
  - WATER POLLUTION [None]
